FAERS Safety Report 11257935 (Version 2)
Quarter: 2015Q3

REPORT INFORMATION
  Report Type: Spontaneous
  Country: US (occurrence: US)
  Receive Date: 20150710
  Receipt Date: 20150714
  Transmission Date: 20151125
  Serious: No
  Sender: FDA-Public Use
  Company Number: US-009507513-1506USA014974

PATIENT
  Age: 21 Year
  Sex: Female
  Weight: 78.91 kg

DRUGS (1)
  1. NEXPLANON [Suspect]
     Active Substance: ETONOGESTREL
     Indication: CONTRACEPTION
     Dosage: 1 ROD FOR 3 YEARS, IN RIGHT ARM
     Route: 059
     Dates: start: 20150609

REACTIONS (3)
  - Implant site fibrosis [Unknown]
  - Implant site bruising [Unknown]
  - Implant site pain [Unknown]

NARRATIVE: CASE EVENT DATE: 20150609
